FAERS Safety Report 5814967-8 (Version None)
Quarter: 2008Q3

REPORT INFORMATION
  Report Type: 
  Country: None (occurrence: None)
  Receive Date: 20080718
  Receipt Date: 20041004
  Transmission Date: 20090109
  Serious: Yes (Other)
  Sender: FDA-Public Use
  Company Number: US-BAXTER-2007BH009871

PATIENT
  Age: 43 Year
  Sex: Male
  Weight: 109 kg

DRUGS (3)
  1. SODIUM CHLORIDE 0.9% IN PLASTIC CONTAINER [Suspect]
     Indication: PLASMAPHERESIS
     Dosage: DOSE UNIT:UNKNOWN
     Route: 042
     Dates: start: 20041004, end: 20041004
  2. ANTICOAGULANT SODIUM CITRATE SOLUTION [Suspect]
     Indication: PLASMAPHERESIS
     Dosage: DOSE UNIT:UNKNOWN
     Route: 042
     Dates: start: 20041004, end: 20041004
  3. NASACORT [Concomitant]
     Indication: SEASONAL ALLERGY
     Route: 055

REACTIONS (6)
  - BLOOD PRESSURE INCREASED [None]
  - DYSPNOEA [None]
  - FLUSHING [None]
  - LACRIMATION INCREASED [None]
  - PRURITUS [None]
  - RESPIRATORY RATE INCREASED [None]
